FAERS Safety Report 23370946 (Version 1)
Quarter: 2024Q1

REPORT INFORMATION
  Report Type: Spontaneous
  Country: US (occurrence: US)
  Receive Date: 20240105
  Receipt Date: 20240105
  Transmission Date: 20240410
  Serious: No
  Sender: FDA-Public Use
  Company Number: US-GSK-US2023AMR181315

PATIENT
  Age: 6 Year
  Sex: Male

DRUGS (1)
  1. FLUTICASONE PROPIONATE [Suspect]
     Active Substance: FLUTICASONE PROPIONATE
     Indication: Asthma exercise induced
     Dosage: 44 ?G, 10.6G/120 METERED

REACTIONS (4)
  - Therapy change [Unknown]
  - Device issue [Unknown]
  - Product prescribing issue [Unknown]
  - Product use in unapproved indication [Unknown]
